FAERS Safety Report 5871724-4 (Version None)
Quarter: 2008Q3

REPORT INFORMATION
  Report Type: 
  Country: None (occurrence: None)
  Receive Date: 20080904
  Receipt Date: 20080904
  Transmission Date: 20090109
  Serious: No
  Sender: FDA-Public Use
  Company Number: None

PATIENT
  Age: 55 Year
  Sex: Female

DRUGS (1)
  1. DAYTRANA [Suspect]
     Indication: DISTURBANCE IN ATTENTION
     Dosage: 30'S - 10MG APPLY 1 PATCH DAILY AD DIRECTED
     Dates: start: 20080808

REACTIONS (3)
  - APPLICATION SITE PRURITUS [None]
  - APPLICATION SITE URTICARIA [None]
  - DERMATITIS CONTACT [None]
